FAERS Safety Report 21992671 (Version 1)
Quarter: 2023Q1

REPORT INFORMATION
  Report Type: Spontaneous
  Country: US (occurrence: US)
  Receive Date: 20230215
  Receipt Date: 20230215
  Transmission Date: 20230418
  Serious: Yes (Other)
  Sender: FDA-Public Use
  Company Number: US-CELLTRION INC.-2023US003121

PATIENT

DRUGS (2)
  1. TRUXIMA [Suspect]
     Active Substance: RITUXIMAB-ABBS
     Indication: Waldenstrom^s macroglobulinaemia
     Dosage: 1000 MILLIGRAM EVERY 28 DAYS
     Dates: start: 20221227
  2. TRUXIMA [Suspect]
     Active Substance: RITUXIMAB-ABBS
     Dosage: 1000 MILLIGRAM EVERY 28 DAYS
     Dates: start: 20230124

REACTIONS (2)
  - Waldenstrom^s macroglobulinaemia [Unknown]
  - Off label use [Unknown]
